FAERS Safety Report 8229344 (Version 4)
Quarter: 2012Q4

REPORT INFORMATION
  Report Type: 
  Country: US (occurrence: US)
  Receive Date: 20111104
  Receipt Date: 20120907
  Transmission Date: 20130627
  Serious: Yes (Hospitalization)
  Sender: FDA-Public Use
  Company Number: US-GLAXOSMITHKLINE-A0938815A

PATIENT
  Age: 56 Year
  Sex: Female
  Weight: 131.8 kg

DRUGS (8)
  1. AVANDIA [Suspect]
     Indication: DIABETES MELLITUS
     Dosage: 2MG Twice per day
     Route: 048
     Dates: start: 200212, end: 200512
  2. LIPITOR [Concomitant]
  3. ALBUTEROL [Concomitant]
  4. HCTZ [Concomitant]
  5. CAPTOPRIL [Concomitant]
  6. ATENOLOL [Concomitant]
  7. INSULIN [Concomitant]
  8. CLONIDINE [Concomitant]

REACTIONS (2)
  - Cardiac failure congestive [Unknown]
  - Myocardial infarction [Unknown]
